FAERS Safety Report 7969447-0 (Version None)
Quarter: 2011Q4

REPORT INFORMATION
  Report Type: 
  Country: None (occurrence: None)
  Receive Date: 20111212
  Receipt Date: 20111205
  Transmission Date: 20120403
  Serious: Yes (Hospitalization, Other)
  Sender: FDA-Public Use
  Company Number: FI-BIOGENIDEC-2011BI042541

PATIENT
  Age: 47 Year
  Sex: Female

DRUGS (8)
  1. SERTRALINE HYDROCHLORIDE [Concomitant]
  2. KLOTRIPTYL MITE [Concomitant]
     Route: 048
  3. IMOVANE [Concomitant]
  4. SPASMO-LYT PLUS [Concomitant]
  5. NATALIZUMAB [Suspect]
     Indication: MULTIPLE SCLEROSIS
     Route: 042
     Dates: start: 20060320, end: 20111003
  6. DESOGESTREL AND ETHINYL ESTRADIOL [Concomitant]
  7. OPAMOX [Concomitant]
  8. TIZANIDINE HCL [Concomitant]

REACTIONS (1)
  - PROGRESSIVE MULTIFOCAL LEUKOENCEPHALOPATHY [None]
